FAERS Safety Report 12332791 (Version 1)
Quarter: 2016Q2

REPORT INFORMATION
  Report Type: Spontaneous
  Country: US (occurrence: US)
  Receive Date: 20160504
  Receipt Date: 20160504
  Transmission Date: 20160815
  Serious: No
  Sender: FDA-Public Use
  Company Number: US-ROCHE-ITM201506IM017990

PATIENT
  Sex: Male
  Weight: 102.15 kg

DRUGS (1)
  1. ESBRIET [Suspect]
     Active Substance: PIRFENIDONE
     Indication: IDIOPATHIC PULMONARY FIBROSIS
     Dosage: DOSAGE1:(267.0 MG X 3)TOTAL 2403 MG DAILY 3 CAPS T
     Route: 048
     Dates: start: 20150512

REACTIONS (6)
  - Nasal congestion [Unknown]
  - Muscle strain [Unknown]
  - Dizziness [Unknown]
  - Nausea [Unknown]
  - Cough [Unknown]
  - Fatigue [Unknown]
